FAERS Safety Report 23839980 (Version 3)
Quarter: 2024Q2

REPORT INFORMATION
  Report Type: Spontaneous
  Country: JP (occurrence: JP)
  Receive Date: 20240510
  Receipt Date: 20240606
  Transmission Date: 20240716
  Serious: Yes (Death, Life-Threatening, Hospitalization, Other)
  Sender: FDA-Public Use
  Company Number: JP-TAKEDA-2024TJP006155

PATIENT
  Age: 76 Year
  Sex: Male
  Weight: 44.1 kg

DRUGS (14)
  1. TEDUGLUTIDE [Suspect]
     Active Substance: TEDUGLUTIDE
     Indication: Short-bowel syndrome
     Dosage: 2 MILLIGRAM, QD
     Route: 058
     Dates: start: 20240405
  2. TEDUGLUTIDE [Suspect]
     Active Substance: TEDUGLUTIDE
     Indication: Short-bowel syndrome
     Dosage: 2 MILLIGRAM, QD
     Route: 058
     Dates: start: 20240405
  3. TEDUGLUTIDE [Suspect]
     Active Substance: TEDUGLUTIDE
     Indication: Short-bowel syndrome
     Dosage: 2 MILLIGRAM, QD
     Route: 058
     Dates: start: 20240405
  4. TEDUGLUTIDE [Suspect]
     Active Substance: TEDUGLUTIDE
     Indication: Short-bowel syndrome
     Dosage: 2 MILLIGRAM, QD
     Route: 058
     Dates: start: 20240405
  5. TEDUGLUTIDE [Suspect]
     Active Substance: TEDUGLUTIDE
     Dosage: 0.1 MILLILITER, QD
     Route: 058
     Dates: end: 20240507
  6. TEDUGLUTIDE [Suspect]
     Active Substance: TEDUGLUTIDE
     Dosage: 0.1 MILLILITER, QD
     Route: 058
     Dates: end: 20240507
  7. TEDUGLUTIDE [Suspect]
     Active Substance: TEDUGLUTIDE
     Dosage: 0.1 MILLILITER, QD
     Route: 058
     Dates: end: 20240507
  8. TEDUGLUTIDE [Suspect]
     Active Substance: TEDUGLUTIDE
     Dosage: 0.1 MILLILITER, QD
     Route: 058
     Dates: end: 20240507
  9. BISOPROLOL FUMARATE [Concomitant]
     Active Substance: BISOPROLOL FUMARATE
     Dosage: 1.25 MILLIGRAM, QD
     Route: 048
     Dates: start: 20231102
  10. ROSUVASTATIN CALCIUM [Concomitant]
     Active Substance: ROSUVASTATIN CALCIUM
     Dosage: 2.5 MILLIGRAM, QD
     Route: 048
     Dates: start: 20231102
  11. URSODIOL [Concomitant]
     Active Substance: URSODIOL
     Dosage: 200 MILLIGRAM, BID
     Route: 048
  12. BIO-THREE [Concomitant]
     Active Substance: HERBALS
     Dosage: UNK UNK, QD
     Route: 048
     Dates: start: 20231125
  13. DAYVIGO [Concomitant]
     Active Substance: LEMBOREXANT
     Dosage: UNK
     Route: 048
     Dates: start: 20231102
  14. RAMELTEON [Concomitant]
     Active Substance: RAMELTEON
     Dosage: UNK UNK, QD
     Route: 048
     Dates: start: 20231102

REACTIONS (10)
  - Ascites [Fatal]
  - Pleural effusion [Fatal]
  - Multiple organ dysfunction syndrome [Fatal]
  - Loss of consciousness [Not Recovered/Not Resolved]
  - Renal impairment [Not Recovered/Not Resolved]
  - Hypoalbuminaemia [Unknown]
  - Hypotension [Not Recovered/Not Resolved]
  - Abdominal distension [Not Recovered/Not Resolved]
  - Weight increased [Unknown]
  - Vomiting [Unknown]

NARRATIVE: CASE EVENT DATE: 20240401
